FAERS Safety Report 9706222 (Version 2)
Quarter: 2013Q4

REPORT INFORMATION
  Report Type: Report from Study
  Country: ZA (occurrence: ZA)
  Receive Date: 20131125
  Receipt Date: 20131125
  Transmission Date: 20140711
  Serious: Yes (Hospitalization)
  Sender: FDA-Public Use
  Company Number: ZA-ROCHE-1277852

PATIENT
  Age: 48 Year
  Sex: Female

DRUGS (7)
  1. MIRCERA [Suspect]
     Indication: NEPHROGENIC ANAEMIA
     Route: 058
     Dates: start: 201306
  2. TITRALAC (SOUTH AFRICA) [Concomitant]
     Route: 065
  3. NOVOMIX [Concomitant]
     Dosage: 10 U
     Route: 065
  4. EXFORGE [Concomitant]
     Dosage: 5/160 MG EVERY DAY
     Route: 065
  5. CARLOC [Concomitant]
     Route: 065
  6. SENOKOT [Concomitant]
     Route: 065
  7. CRESTOR [Concomitant]
     Dosage: 5 MG EVERY DAY
     Route: 065

REACTIONS (3)
  - Peritonitis [Unknown]
  - Diabetes mellitus inadequate control [Unknown]
  - Fluid overload [Unknown]
